FAERS Safety Report 19725768 (Version 3)
Quarter: 2021Q3

REPORT INFORMATION
  Report Type: Report from Study
  Country: US (occurrence: US)
  Receive Date: 20210819
  Receipt Date: 20210913
  Transmission Date: 20211014
  Serious: Yes (Hospitalization)
  Sender: FDA-Public Use
  Company Number: US-SEATTLE GENETICS-2021SGN04175

PATIENT
  Age: 71 Year
  Sex: Female
  Weight: 56.69 kg

DRUGS (18)
  1. TUCATINIB [Suspect]
     Active Substance: TUCATINIB
     Dosage: 300 MG, BID FROM CYCLE 1 DAY 8 ONWARDS
     Route: 048
     Dates: start: 20210609, end: 2021
  2. LOMOTIL [LOPERAMIDE HYDROCHLORIDE] [Concomitant]
     Active Substance: LOPERAMIDE HYDROCHLORIDE
     Dosage: UNK
     Route: 048
     Dates: start: 20210728
  3. CHOLECALCIFEROL [Concomitant]
     Active Substance: CHOLECALCIFEROL
     Indication: VITAMIN SUPPLEMENTATION
     Dosage: UNK
     Route: 048
     Dates: start: 2019
  4. LOPERAMIDE [Concomitant]
     Active Substance: LOPERAMIDE
     Dosage: UNK
     Route: 048
     Dates: start: 20210707
  5. TUCATINIB [Suspect]
     Active Substance: TUCATINIB
     Indication: OESOPHAGEAL ADENOCARCINOMA
     Dosage: 250 MG, BID FROM CYCLE 1 DAY 8 ONWARDS
     Route: 048
     Dates: start: 20210714, end: 20210728
  6. TRASTUZUMAB. [Suspect]
     Active Substance: TRASTUZUMAB
     Indication: OESOPHAGEAL ADENOCARCINOMA
     Dosage: 4 MG/KG ON DAY 1 OF EVERY 2?WEEK CYCLE (STARTING FROM CYCLE 2 DAY 1 ONWARDS)
     Route: 042
     Dates: start: 20210609, end: 20210728
  7. LIDOCAINE/PRILOCAINE [Concomitant]
     Active Substance: LIDOCAINE\PRILOCAINE
     Indication: PROPHYLAXIS
     Dosage: UNK
     Route: 061
     Dates: start: 20210609
  8. PANTOPRAZOLE [Concomitant]
     Active Substance: PANTOPRAZOLE
     Indication: PROPHYLAXIS
     Dosage: UNK
     Route: 048
     Dates: start: 20210405
  9. METOPROLOL. [Concomitant]
     Active Substance: METOPROLOL
     Indication: HYPERTENSION
     Dosage: UNK
     Route: 048
     Dates: start: 20210330
  10. ONDANSETRON [Concomitant]
     Active Substance: ONDANSETRON
     Indication: NAUSEA
     Dosage: UNK
     Route: 048
     Dates: start: 20210615
  11. OXALIPLATIN. [Suspect]
     Active Substance: OXALIPLATIN
     Indication: OESOPHAGEAL ADENOCARCINOMA
     Dosage: 85 MG/M2 ON CYCLE 1 DAY 1 OF EVERY 2?WEEK CYCLE
     Route: 042
     Dates: start: 20210609, end: 20210728
  12. LEUCOVORIN. [Suspect]
     Active Substance: LEUCOVORIN
     Indication: OESOPHAGEAL ADENOCARCINOMA
     Dosage: 200 MG/M2 ON CYCLE 1 DAY 1 OF EVERY 2?WEEK CYCLE
     Route: 042
     Dates: start: 20210609, end: 20210728
  13. ASPIRINA FORTE [ACETYLSALICYLIC ACID] [Concomitant]
     Indication: HYPERTENSION
     Dosage: UNK
     Route: 048
     Dates: start: 20210514
  14. SERTRALINE [Concomitant]
     Active Substance: SERTRALINE HYDROCHLORIDE
     Indication: ANXIETY
     Dosage: UNK
     Route: 048
     Dates: start: 20201005
  15. MIRALAX [Concomitant]
     Active Substance: POLYETHYLENE GLYCOL 3350
     Indication: CONSTIPATION
     Dosage: UNK
     Route: 048
     Dates: start: 20210614
  16. FLUOROURACIL. [Suspect]
     Active Substance: FLUOROURACIL
     Indication: OESOPHAGEAL ADENOCARCINOMA
     Dosage: 2400 MG/M2 ON CYCLE 1 DAY 1 OF EVERY 2?WEEK CYCLE
     Route: 042
     Dates: start: 20210609, end: 20210728
  17. ACETAMINOPHEN. [Concomitant]
     Active Substance: ACETAMINOPHEN
     Indication: PAIN
     Dosage: UNK
     Route: 048
     Dates: start: 202105
  18. KCL [Concomitant]
     Active Substance: POTASSIUM CHLORIDE
     Dosage: 40 MEQ
     Route: 048
     Dates: start: 20210803

REACTIONS (1)
  - Hypokalaemia [Recovered/Resolved]

NARRATIVE: CASE EVENT DATE: 20210811
